FAERS Safety Report 4626742-0 (Version None)
Quarter: 2005Q2

REPORT INFORMATION
  Report Type: 
  Country: None (occurrence: None)
  Receive Date: 20050405
  Receipt Date: 20050330
  Transmission Date: 20051028
  Serious: Yes (Death, Hospitalization, Other)
  Sender: FDA-Public Use
  Company Number: 200512890GDDC

PATIENT
  Sex: Male

DRUGS (2)
  1. LANTUS [Suspect]
  2. HUMALOG [Concomitant]

REACTIONS (3)
  - ACCIDENTAL EXPOSURE [None]
  - MEDICATION ERROR [None]
  - PNEUMONIA [None]
